FAERS Safety Report 13180979 (Version 1)
Quarter: 2017Q1

REPORT INFORMATION
  Report Type: Spontaneous
  Country: US (occurrence: US)
  Receive Date: 20170202
  Receipt Date: 20170202
  Transmission Date: 20170428
  Serious: No
  Sender: FDA-Public Use
  Company Number: US-SMITH AND NEPHEW, INC-2016SMT00415

PATIENT
  Age: 50 Year
  Sex: Male
  Weight: 90.7 kg

DRUGS (4)
  1. REGRANEX [Suspect]
     Active Substance: BECAPLERMIN
     Indication: SKIN ULCER
     Dosage: UNK UNK, 1X/DAY
     Route: 061
     Dates: start: 20160507, end: 201605
  2. REGRANEX [Suspect]
     Active Substance: BECAPLERMIN
     Dosage: UNK UNK, 1X/DAY
     Route: 061
     Dates: start: 20160511
  3. UNSPECIFIED VITAMINS [Concomitant]
     Active Substance: VITAMINS
     Dosage: UNKNOWN
  4. UNSPECIFIED SPASM MEDICATIONS [Concomitant]
     Dosage: UNKNOWN

REACTIONS (3)
  - Off label use [Unknown]
  - Application site pain [Recovered/Resolved]
  - Wound complication [Not Recovered/Not Resolved]

NARRATIVE: CASE EVENT DATE: 201605
